FAERS Safety Report 4319803-7 (Version None)
Quarter: 2004Q1

REPORT INFORMATION
  Report Type: 
  Country: None (occurrence: None)
  Receive Date: 20040316
  Receipt Date: 20040303
  Transmission Date: 20041129
  Serious: Yes (Death)
  Sender: FDA-Public Use
  Company Number: USA040360584

PATIENT
  Age: 82 Year
  Sex: Female
  Weight: 34 kg

DRUGS (8)
  1. FORTEO [Suspect]
     Indication: RHEUMATOID ARTHRITIS
  2. EVISTA [Suspect]
  3. PREDNISONE [Concomitant]
  4. BEXTRA [Concomitant]
  5. CALCIUM [Concomitant]
  6. MULTI-VITAMIN [Concomitant]
  7. METHOTREXATE [Concomitant]
  8. CALTRATE (CALCIUM CARBONATE) [Concomitant]

REACTIONS (2)
  - CHRONIC OBSTRUCTIVE AIRWAYS DISEASE [None]
  - RHEUMATOID LUNG [None]
